FAERS Safety Report 11522103 (Version 2)
Quarter: 2015Q3

REPORT INFORMATION
  Report Type: Spontaneous
  Country: US (occurrence: US)
  Receive Date: 20150903
  Receipt Date: 20150903
  Transmission Date: 20151125
  Serious: No
  Sender: FDA-Public Use
  Company Number: US-ELI_LILLY_AND_COMPANY-US200907005218

PATIENT
  Age: 60 Year
  Sex: Female

DRUGS (9)
  1. HUMALOG [Suspect]
     Active Substance: INSULIN LISPRO
     Dosage: UNK, AS NEEDED
  2. LANTUS [Concomitant]
     Active Substance: INSULIN GLARGINE
     Dosage: UNK, EACH EVENING
  3. HUMALOG [Suspect]
     Active Substance: INSULIN LISPRO
     Indication: DIABETES MELLITUS
     Dosage: 4 U, EACH MORNING
  4. HUMALOG [Suspect]
     Active Substance: INSULIN LISPRO
     Dosage: 6 U, EACH MORNING
  5. HUMALOG [Suspect]
     Active Substance: INSULIN LISPRO
     Dosage: 4 U, EACH EVENING
  6. POTASSIUM [Concomitant]
     Active Substance: POTASSIUM
     Dosage: 10 MEQ, UNK
     Dates: start: 1995
  7. SYMLIN [Concomitant]
     Active Substance: PRAMLINTIDE ACETATE
  8. HUMALOG [Suspect]
     Active Substance: INSULIN LISPRO
     Dosage: 6 U, EACH EVENING
  9. HUMALOG [Suspect]
     Active Substance: INSULIN LISPRO
     Dosage: UNK, AS NEEDED

REACTIONS (6)
  - Drug ineffective [Not Recovered/Not Resolved]
  - Muscle atrophy [Unknown]
  - Mobility decreased [Unknown]
  - Blood potassium decreased [Unknown]
  - Pain [Unknown]
  - Blood glucose increased [Not Recovered/Not Resolved]

NARRATIVE: CASE EVENT DATE: 20090719
